FAERS Safety Report 5295409-0 (Version None)
Quarter: 2007Q1

REPORT INFORMATION
  Report Type: 
  Country: None (occurrence: None)
  Receive Date: 20070201
  Receipt Date: 20061023
  Transmission Date: 20070707
  Serious: No
  Sender: FDA-Public Use
  Company Number: 2006PV023751

PATIENT
  Age: 46 Year
  Sex: Female
  Weight: 133.3575 kg

DRUGS (3)
  1. BYETTA [Suspect]
     Indication: DIABETES MELLITUS NON-INSULIN-DEPENDENT
     Dosage: SEE IMAGE
     Route: 058
     Dates: start: 20060913, end: 20061007
  2. BYETTA [Suspect]
     Indication: DIABETES MELLITUS NON-INSULIN-DEPENDENT
     Dosage: SEE IMAGE
     Route: 058
     Dates: start: 20061022, end: 20061022
  3. MOBIC [Suspect]
     Indication: ARTHRITIS
     Dates: end: 20061007

REACTIONS (7)
  - BRONCHITIS [None]
  - COUGH [None]
  - EARLY SATIETY [None]
  - NAUSEA [None]
  - PHOTOSENSITIVITY REACTION [None]
  - TOOTHACHE [None]
  - WEIGHT DECREASED [None]
